FAERS Safety Report 9208889 (Version 2)
Quarter: 2013Q2

REPORT INFORMATION
  Report Type: Spontaneous
  Country: TR (occurrence: TR)
  Receive Date: 20130404
  Receipt Date: 20130425
  Transmission Date: 20140414
  Serious: Yes (Other)
  Sender: FDA-Public Use
  Company Number: TR-JNJFOC-20130317087

PATIENT
  Age: 64 Year
  Sex: Female

DRUGS (3)
  1. DOXORUBICIN [Suspect]
     Indication: PLASMA CELL MYELOMA
     Route: 042
  2. VINCRISTINE [Suspect]
     Indication: PLASMA CELL MYELOMA
     Route: 065
  3. DEXAMETHASONE [Suspect]
     Indication: PLASMA CELL MYELOMA
     Route: 065

REACTIONS (1)
  - Pancreatitis acute [Recovering/Resolving]
